FAERS Safety Report 21726734 (Version 1)
Quarter: 2022Q4

REPORT INFORMATION
  Report Type: Report from Study
  Country: US (occurrence: US)
  Receive Date: 20221214
  Receipt Date: 20221214
  Transmission Date: 20230113
  Serious: Yes (Hospitalization, Other)
  Sender: FDA-Public Use
  Company Number: US-BRISTOL-MYERS SQUIBB COMPANY-2022-151119

PATIENT
  Age: 16 Year
  Sex: Male
  Weight: 74.8 kg

DRUGS (4)
  1. NIVOLUMAB [Suspect]
     Active Substance: NIVOLUMAB
     Indication: Hodgkin^s disease
     Dosage: 240 MG IV ON DAYS 1 AND 15; LAST ADMINISTERED DATE: 09-NOV-2020
     Route: 042
  2. DOXORUBICIN HYDROCHLORIDE [Suspect]
     Active Substance: DOXORUBICIN HYDROCHLORIDE
     Indication: Hodgkin^s disease
     Dosage: 25 MG/M2 IV ON DAYS 1 AND 15; LAST ADMINISTERED DATE: 09-NOV-2020
     Route: 042
  3. DACARBAZINE [Suspect]
     Active Substance: DACARBAZINE
     Indication: Hodgkin^s disease
     Dosage: 375 MG/M2 IV ON DAYS 1 AND 15 ; LAST ADMINISTERED DATE: 09-NOV-2020
     Route: 042
     Dates: start: 20200205
  4. VINBLASTINE SULFATE [Suspect]
     Active Substance: VINBLASTINE SULFATE
     Indication: Hodgkin^s disease
     Dosage: 240 MG IV ON DAYS 1 AND 15; LAST ADMINISTERED DATE: 09-NOV-2020
     Route: 042
     Dates: start: 20201109

REACTIONS (2)
  - Device related sepsis [Recovering/Resolving]
  - Escherichia bacteraemia [Unknown]

NARRATIVE: CASE EVENT DATE: 20201031
